FAERS Safety Report 18734338 (Version 1)
Quarter: 2021Q1

REPORT INFORMATION
  Report Type: Spontaneous
  Country: NL (occurrence: NL)
  Receive Date: 20210113
  Receipt Date: 20210113
  Transmission Date: 20210419
  Serious: Yes (Life-Threatening, Hospitalization)
  Sender: FDA-Public Use
  Company Number: NL-ASTRAZENECA-2021A004300

PATIENT
  Age: 11064 Day
  Sex: Female

DRUGS (5)
  1. FASENRA [Suspect]
     Active Substance: BENRALIZUMAB
     Indication: ASTHMA
     Route: 058
     Dates: start: 20201107, end: 20210108
  2. TAVEGYL [Concomitant]
     Active Substance: CLEMASTINE FUMARATE
     Dosage: 2 MG
  3. PREDNISOLONE. [Concomitant]
     Active Substance: PREDNISOLONE
     Dosage: 15 MG WITH SECOND INJECTION OF FASENRA
  4. PREDNISOLONE. [Concomitant]
     Active Substance: PREDNISOLONE
     Dosage: 30 MG WITH THIRD INJECTION OF FASENRA
  5. AZITHROMYCIN ANHYDROUS. [Concomitant]
     Active Substance: AZITHROMYCIN ANHYDROUS

REACTIONS (6)
  - Anaphylactic shock [Recovered/Resolved]
  - Lip swelling [Recovering/Resolving]
  - Dyspnoea [Recovered/Resolved]
  - Pharyngeal swelling [Recovering/Resolving]
  - Swollen tongue [Recovering/Resolving]
  - Wheezing [Recovered/Resolved]

NARRATIVE: CASE EVENT DATE: 20210108
